FAERS Safety Report 18251634 (Version 2)
Quarter: 2020Q3

REPORT INFORMATION
  Report Type: Report from Study
  Country: MX (occurrence: MX)
  Receive Date: 20200910
  Receipt Date: 20200914
  Transmission Date: 20201103
  Serious: Yes (Death, Hospitalization)
  Sender: FDA-Public Use
  Company Number: NVSC2020MX247746

PATIENT
  Age: 68 Year
  Sex: Female
  Weight: 63 kg

DRUGS (4)
  1. ENTRESTO [Suspect]
     Active Substance: SACUBITRIL\VALSARTAN
     Indication: CARDIAC PACEMAKER INSERTION
     Dosage: 1 DF, QD
     Route: 048
     Dates: end: 20200817
  2. INSULIN [Concomitant]
     Active Substance: INSULIN NOS
     Indication: BLOOD INSULIN
     Dosage: UNK
     Route: 059
     Dates: end: 20200817
  3. ENTRESTO [Suspect]
     Active Substance: SACUBITRIL\VALSARTAN
     Indication: BLOOD PRESSURE INCREASED
  4. FEMARA [Suspect]
     Active Substance: LETROZOLE
     Indication: BREAST CANCER
     Dosage: 1 DF, QD
     Route: 048
     Dates: end: 20200817

REACTIONS (10)
  - Thrombosis [Unknown]
  - Cardiac arrest [Fatal]
  - Diabetes mellitus [Fatal]
  - Scar [Unknown]
  - Gait disturbance [Recovering/Resolving]
  - Peripheral swelling [Unknown]
  - Fall [Recovering/Resolving]
  - Product use in unapproved indication [Unknown]
  - Product prescribing error [Unknown]
  - Meningitis aseptic [Fatal]

NARRATIVE: CASE EVENT DATE: 20190820
